FAERS Safety Report 5604574-4 (Version None)
Quarter: 2008Q1

REPORT INFORMATION
  Report Type: 
  Country: None (occurrence: None)
  Receive Date: 20080124
  Receipt Date: 20080124
  Transmission Date: 20080703
  Serious: Yes (Other)
  Sender: FDA-Public Use
  Company Number: None

PATIENT
  Age: 31 Year
  Sex: Female
  Weight: 58.9676 kg

DRUGS (2)
  1. YAZ [Suspect]
     Indication: ACNE
     Dates: start: 20071229, end: 20071231
  2. YAZ [Suspect]
     Indication: ACNE
     Dates: start: 20080118, end: 20080118

REACTIONS (2)
  - PARANOIA [None]
  - PSYCHOTIC DISORDER [None]
